FAERS Safety Report 6506265-4 (Version None)
Quarter: 2009Q4

REPORT INFORMATION
  Report Type: 
  Country: None (occurrence: None)
  Receive Date: 20091218
  Receipt Date: 20091208
  Transmission Date: 20100525
  Serious: Yes (Death)
  Sender: FDA-Public Use
  Company Number: GB-GENENTECH-295818

PATIENT
  Sex: Male
  Weight: 65 kg

DRUGS (10)
  1. RITUXIMAB [Suspect]
     Indication: MANTLE CELL LYMPHOMA
     Dosage: 800 MG, QAM
     Route: 042
     Dates: start: 20090120, end: 20090415
  2. FLUDARABINE [Suspect]
     Indication: MANTLE CELL LYMPHOMA
     Dosage: 80 MG, QAM
     Route: 048
     Dates: start: 20090120, end: 20090415
  3. CYCLOPHOSPHAMIDE [Suspect]
     Indication: MANTLE CELL LYMPHOMA
     Dosage: 500 MG, QAM
     Route: 048
     Dates: start: 20090120, end: 20090415
  4. ASPIRIN [Concomitant]
     Indication: DRUG USE FOR UNKNOWN INDICATION
     Dosage: 75 MG, QAM
     Route: 048
     Dates: end: 20091108
  5. FOLIC ACID [Concomitant]
     Indication: DRUG USE FOR UNKNOWN INDICATION
     Dosage: 5 MG, QAM
     Route: 048
     Dates: end: 20091108
  6. TAMIFLU [Concomitant]
     Indication: PROPHYLAXIS
     Dosage: 75 MG, BID
     Route: 048
     Dates: start: 20091108, end: 20091110
  7. PARACETAMOL [Concomitant]
     Indication: DRUG USE FOR UNKNOWN INDICATION
     Dosage: 1 G, PRN
     Route: 048
     Dates: start: 20091109
  8. NORADRENALINE [Concomitant]
     Indication: DRUG USE FOR UNKNOWN INDICATION
     Dosage: UNK
     Route: 042
     Dates: start: 20091108
  9. HALOPERIDOL [Concomitant]
     Indication: DRUG USE FOR UNKNOWN INDICATION
     Dosage: UNK
     Dates: start: 20091108
  10. VORICONAZOLE [Concomitant]
     Indication: DRUG USE FOR UNKNOWN INDICATION
     Dosage: 200 MG, BID
     Route: 048
     Dates: start: 20091001, end: 20091119

REACTIONS (1)
  - INFECTION [None]
